FAERS Safety Report 9392075 (Version 1)
Quarter: 2013Q3

REPORT INFORMATION
  Report Type: Report from Study
  Country: AU (occurrence: AU)
  Receive Date: 20130709
  Receipt Date: 20130709
  Transmission Date: 20140515
  Serious: Yes (Other)
  Sender: FDA-Public Use
  Company Number: AU-GILEAD-2013-0078520

PATIENT
  Age: 39 Week
  Sex: 0

DRUGS (1)
  1. TENOFOVIR DISOPROXIL FUMARATE [Suspect]
     Indication: ANTIVIRAL PROPHYLAXIS

REACTIONS (1)
  - Deafness unilateral [Unknown]
